FAERS Safety Report 9889511 (Version 3)
Quarter: 2014Q1

REPORT INFORMATION
  Report Type: Report from Study
  Country: US (occurrence: US)
  Receive Date: 20140211
  Receipt Date: 20140303
  Transmission Date: 20141002
  Serious: No
  Sender: FDA-Public Use
  Company Number: US-ASTRAZENECA-2013SE18959

PATIENT
  Age: 54 Year
  Sex: Male
  Weight: 142 kg

DRUGS (3)
  1. NEXIUM [Suspect]
     Indication: GASTROOESOPHAGEAL REFLUX DISEASE
     Route: 048
  2. NEXIUM [Suspect]
     Indication: GASTROOESOPHAGEAL REFLUX DISEASE
     Route: 048
     Dates: start: 2004, end: 201401
  3. OVER THE COUNTER MEDICATION [Concomitant]

REACTIONS (4)
  - Gastrooesophageal reflux disease [Unknown]
  - Burning sensation [Unknown]
  - Intentional drug misuse [Unknown]
  - Drug dose omission [Unknown]
